FAERS Safety Report 5245120-7 (Version None)
Quarter: 2007Q1

REPORT INFORMATION
  Report Type: 
  Country: None (occurrence: None)
  Receive Date: 20070223
  Receipt Date: 20070215
  Transmission Date: 20070707
  Serious: Yes (Other)
  Sender: FDA-Public Use
  Company Number: 2006AP05153

PATIENT
  Sex: Female

DRUGS (1)
  1. XYLOCAINE [Suspect]
     Indication: SKIN TEST

REACTIONS (3)
  - FEELING ABNORMAL [None]
  - RHINORRHOEA [None]
  - SHOCK [None]
